FAERS Safety Report 8479563-5 (Version None)
Quarter: 2012Q2

REPORT INFORMATION
  Report Type: 
  Country: None (occurrence: None)
  Receive Date: 20120629
  Receipt Date: 20120621
  Transmission Date: 20120825
  Serious: Yes (Hospitalization)
  Sender: FDA-Public Use
  Company Number: US-PFIZER INC-2012150127

PATIENT
  Sex: Female
  Weight: 77.551 kg

DRUGS (7)
  1. SOMA [Concomitant]
     Indication: PAIN
     Dosage: UNK
  2. HYDROCODONE [Concomitant]
     Indication: PAIN
     Dosage: UNK
  3. PREDNISONE [Concomitant]
     Dosage: UNK
  4. TRAMADOL [Concomitant]
     Indication: PAIN
     Dosage: UNK
  5. CHANTIX [Suspect]
     Indication: SMOKING CESSATION THERAPY
     Dosage: 0.5 MG, 1X/DAY
     Route: 048
  6. CHANTIX [Suspect]
     Dosage: UNK
     Route: 048
  7. KLONOPIN [Concomitant]
     Indication: ANXIETY
     Dosage: UNK

REACTIONS (3)
  - MYOCARDIAL INFARCTION [None]
  - COUGH [None]
  - THROAT IRRITATION [None]
